FAERS Safety Report 5842695-1 (Version None)
Quarter: 2008Q3

REPORT INFORMATION
  Report Type: 
  Country: None (occurrence: None)
  Receive Date: 20080812
  Receipt Date: 20080804
  Transmission Date: 20090109
  Serious: Yes (Hospitalization, Other)
  Sender: FDA-Public Use
  Company Number: US-AMGEN-QUU268746

PATIENT
  Sex: Male

DRUGS (10)
  1. ENBREL [Suspect]
     Indication: RHEUMATOID ARTHRITIS
     Route: 058
     Dates: start: 20010101
  2. METHOTREXATE [Concomitant]
  3. HYDROCODONE BITARTRATE [Concomitant]
  4. DEXAMETHASONE [Concomitant]
  5. METFORMIN HCL [Concomitant]
  6. GLIPIZIDE [Concomitant]
  7. CRESTOR [Concomitant]
  8. METOPROLOL SUCCINATE [Concomitant]
  9. OMEPRAZOLE [Concomitant]
  10. NOVOLOG [Concomitant]

REACTIONS (11)
  - ACTINIC KERATOSIS [None]
  - ANAEMIA [None]
  - ARTERIOSCLEROSIS CORONARY ARTERY [None]
  - ASCITES [None]
  - BLOOD UREA INCREASED [None]
  - CARDIAC MURMUR [None]
  - DIABETES MELLITUS [None]
  - GASTROINTESTINAL HAEMORRHAGE [None]
  - HEPATIC CIRRHOSIS [None]
  - OESOPHAGEAL VARICES HAEMORRHAGE [None]
  - RHEUMATOID ARTHRITIS [None]
